FAERS Safety Report 11661841 (Version 2)
Quarter: 2015Q4

REPORT INFORMATION
  Report Type: Spontaneous
  Country: FR (occurrence: FR)
  Receive Date: 20151026
  Receipt Date: 20151117
  Transmission Date: 20160304
  Serious: Yes (Death)
  Sender: FDA-Public Use
  Company Number: FR-B.I. PHARMACEUTICALS,INC./RIDGEFIELD-2015-BI-58973FF

PATIENT
  Age: 69 Year
  Sex: Male
  Weight: 90 kg

DRUGS (5)
  1. CORTANCYL [Concomitant]
     Active Substance: PREDNISONE
     Indication: FIBROSIS
     Dosage: 20 MG
     Route: 048
     Dates: end: 20150804
  2. EUPANTYL [Concomitant]
     Indication: FIBROSIS
     Dosage: 20 MG
     Route: 048
     Dates: end: 20150804
  3. OFEV [Suspect]
     Active Substance: NINTEDANIB
     Indication: IDIOPATHIC PULMONARY FIBROSIS
     Dosage: 200 MG
     Route: 048
     Dates: start: 20150417
  4. APROVEL [Concomitant]
     Active Substance: IRBESARTAN
     Indication: CARDIOMYOPATHY
     Dosage: 300 MG
     Route: 048
     Dates: start: 20150707, end: 20150804
  5. SIMVASTATINE [Concomitant]
     Active Substance: SIMVASTATIN
     Indication: HYPERCHOLESTEROLAEMIA
     Dosage: 20 MG
     Route: 048
     Dates: end: 20150804

REACTIONS (1)
  - Acute respiratory failure [Fatal]

NARRATIVE: CASE EVENT DATE: 20150713
